FAERS Safety Report 4436496-9 (Version None)
Quarter: 2004Q3

REPORT INFORMATION
  Report Type: 
  Country: None (occurrence: None)
  Receive Date: 20040830
  Receipt Date: 20040528
  Transmission Date: 20050211
  Serious: No
  Sender: FDA-Public Use
  Company Number: US-BRISTOL-MYERS SQUIBB COMPANY-12600441

PATIENT
  Age: 40 Year
  Sex: Male
  Weight: 91 kg

DRUGS (4)
  1. ABILIFY [Suspect]
     Indication: BIPOLAR DISORDER
     Route: 048
     Dates: start: 20040525
  2. CRESTOR [Concomitant]
  3. RHINOCORT [Concomitant]
  4. VALIUM [Concomitant]

REACTIONS (4)
  - HEADACHE [None]
  - LETHARGY [None]
  - MUSCLE CONTRACTURE [None]
  - MYALGIA [None]
